FAERS Safety Report 5209622-1 (Version None)
Quarter: 2007Q1

REPORT INFORMATION
  Report Type: 
  Country: None (occurrence: None)
  Receive Date: 20070111
  Receipt Date: 20070103
  Transmission Date: 20070707
  Serious: Yes (Hospitalization)
  Sender: FDA-Public Use
  Company Number: GXKR2007GB00467

PATIENT
  Age: 78 Year
  Sex: Male

DRUGS (11)
  1. ACETYLSALICYLIC ACID [Suspect]
     Dosage: 75 MG QD ORAL
     Route: 048
  2. CLOPIDOGREL BISULFATE [Suspect]
     Indication: INFARCTION
     Dosage: 75 MG ORAL
     Route: 048
     Dates: start: 20060901, end: 20061207
  3. BECLOMETHASONE DIPROPIONATE [Concomitant]
  4. BUMATANIDE [Concomitant]
  5. CLEXANE                 (ENOXAPARIN SODIUM, HEPARIN-FRACTON, SODIUM SA [Concomitant]
  6. GTN (GLYCERYL TRINITRATE) [Concomitant]
  7. LANSOPRAZOLE [Concomitant]
  8. NICORANDIL [Concomitant]
  9. RAMIPRIL [Concomitant]
  10. SIMVASTATIN [Concomitant]
  11. SPIRONOLACTONE [Concomitant]

REACTIONS (4)
  - ACUTE MYOCARDIAL INFARCTION [None]
  - ANAEMIA [None]
  - CIRCULATORY COLLAPSE [None]
  - GASTROINTESTINAL HAEMORRHAGE [None]
